FAERS Safety Report 18732967 (Version 1)
Quarter: 2021Q1

REPORT INFORMATION
  Report Type: Spontaneous
  Country: FR (occurrence: FR)
  Receive Date: 20210113
  Receipt Date: 20210113
  Transmission Date: 20210419
  Serious: Yes (Hospitalization, Other)
  Sender: FDA-Public Use
  Company Number: FR-BRISTOL-MYERS SQUIBB COMPANY-BMS-2021-000904

PATIENT
  Age: 50 Year
  Sex: Male
  Weight: 53.5 kg

DRUGS (1)
  1. OPDIVO [Suspect]
     Active Substance: NIVOLUMAB
     Indication: MALIGNANT MELANOMA
     Dosage: 240 MILLIGRAM, 15 DAYS
     Route: 042
     Dates: start: 20190523, end: 20200716

REACTIONS (3)
  - Pulmonary granuloma [Recovering/Resolving]
  - Organising pneumonia [Recovering/Resolving]
  - Off label use [Unknown]

NARRATIVE: CASE EVENT DATE: 202007
